FAERS Safety Report 4466994-3 (Version None)
Quarter: 2004Q4

REPORT INFORMATION
  Report Type: 
  Country: None (occurrence: None)
  Receive Date: 20041005
  Receipt Date: 20040927
  Transmission Date: 20050328
  Serious: Yes (Hospitalization)
  Sender: FDA-Public Use
  Company Number: 2004CG01373

PATIENT
  Age: 52 Year
  Sex: Male
  Weight: 72 kg

DRUGS (2)
  1. CRESTOR [Suspect]
     Indication: HYPERCHOLESTEROLAEMIA
     Dosage: 10 MG QD PO
     Route: 048
     Dates: start: 20040414, end: 20040522
  2. VASTEN [Suspect]
     Indication: HYPERCHOLESTEROLAEMIA
     Dates: start: 20040312, end: 20040330

REACTIONS (10)
  - BLOOD CREATINE PHOSPHOKINASE INCREASED [None]
  - CERVICAL ROOT PAIN [None]
  - GLOMERULONEPHRITIS MEMBRANOUS [None]
  - HAEMATURIA [None]
  - HYPERCHOLESTEROLAEMIA [None]
  - MUSCLE CRAMP [None]
  - NEOPLASM MALIGNANT [None]
  - NEPHROTIC SYNDROME [None]
  - NOCTURNAL DYSPNOEA [None]
  - OEDEMA PERIPHERAL [None]
